FAERS Safety Report 21087489 (Version 1)
Quarter: 2022Q3

REPORT INFORMATION
  Report Type: Spontaneous
  Country: US (occurrence: None)
  Receive Date: 20220714
  Receipt Date: 20220714
  Transmission Date: 20221026
  Serious: Yes (unspecified)
  Sender: FDA-Public Use
  Company Number: None

PATIENT
  Age: 37 Year
  Sex: Male

DRUGS (1)
  1. ORTHO-K THICK (DAYTIME) [Suspect]
     Active Substance: ALUMINUM OXIDE\APIS MELLIFERA\ARSENIC TRIOXIDE\CALENDULA OFFICINALIS FLOWERING TOP\DELPHINIUM STAPHI

REACTIONS (2)
  - Eye pain [None]
  - Expired product administered [None]

NARRATIVE: CASE EVENT DATE: 20220714
